FAERS Safety Report 4965867-7 (Version None)
Quarter: 2006Q2

REPORT INFORMATION
  Report Type: 
  Country: None (occurrence: None)
  Receive Date: 20060406
  Receipt Date: 20060406
  Transmission Date: 20061013
  Serious: No
  Sender: FDA-Public Use
  Company Number: None

PATIENT
  Age: 58 Year
  Sex: Male
  Weight: 116 kg

DRUGS (1)
  1. GEMFIBROZIL [Suspect]
     Indication: HYPERTRIGLYCERIDAEMIA
     Dosage: 1 TABLET   BID   PO
     Route: 048
     Dates: start: 20050203, end: 20060330

REACTIONS (1)
  - DIZZINESS [None]
